FAERS Safety Report 6759475-5 (Version None)
Quarter: 2010Q2

REPORT INFORMATION
  Report Type: 
  Country: None (occurrence: None)
  Receive Date: 20100603
  Receipt Date: 20100520
  Transmission Date: 20101027
  Serious: Yes (Hospitalization, Other)
  Sender: FDA-Public Use
  Company Number: LEO-2010-00452

PATIENT
  Age: 23 Year
  Sex: Female

DRUGS (5)
  1. INNOHEP [Suspect]
     Indication: PROPHYLAXIS
     Dosage: 4500 IU (4500 IU, 1 IN 1 D), SUBCUTANEOUS, 12250 IU (12250 IU, 1 IN 1 D), SUBCUTANEOUS
     Route: 058
     Dates: start: 20070705, end: 20071023
  2. INNOHEP [Suspect]
     Indication: PROTEIN S DEFICIENCY
     Dosage: 4500 IU (4500 IU, 1 IN 1 D), SUBCUTANEOUS, 12250 IU (12250 IU, 1 IN 1 D), SUBCUTANEOUS
     Route: 058
     Dates: start: 20070705, end: 20071023
  3. INNOHEP [Suspect]
     Indication: PROPHYLAXIS
     Dosage: 4500 IU (4500 IU, 1 IN 1 D), SUBCUTANEOUS, 12250 IU (12250 IU, 1 IN 1 D), SUBCUTANEOUS
     Route: 058
     Dates: start: 20071023, end: 20071105
  4. INNOHEP [Suspect]
     Indication: PROTEIN S DEFICIENCY
     Dosage: 4500 IU (4500 IU, 1 IN 1 D), SUBCUTANEOUS, 12250 IU (12250 IU, 1 IN 1 D), SUBCUTANEOUS
     Route: 058
     Dates: start: 20071023, end: 20071105
  5. DEXAMETHASONE [Concomitant]

REACTIONS (7)
  - CAESAREAN SECTION [None]
  - CHORIOAMNIONITIS [None]
  - DRUG EXPOSURE DURING PREGNANCY [None]
  - HAEMATEMESIS [None]
  - PREMATURE LABOUR [None]
  - PREMATURE RUPTURE OF MEMBRANES [None]
  - PULMONARY EMBOLISM [None]
